FAERS Safety Report 5542565-2 (Version None)
Quarter: 2007Q4

REPORT INFORMATION
  Report Type: 
  Country: None (occurrence: None)
  Receive Date: 20071205
  Receipt Date: 20071205
  Transmission Date: 20080405
  Serious: No
  Sender: FDA-Public Use
  Company Number: None

PATIENT
  Age: 58 Year
  Sex: Female
  Weight: 61 kg

DRUGS (2)
  1. LINEZOLID [Suspect]
     Indication: ENTEROCOCCAL INFECTION
     Dosage: 600 MG  BID  PO
     Route: 048
     Dates: start: 20070921, end: 20071011
  2. ESCITALOPRAM [Suspect]
     Indication: ANXIETY

REACTIONS (5)
  - DYSPHEMIA [None]
  - METABOLIC ACIDOSIS [None]
  - SEROTONIN SYNDROME [None]
  - TREMOR [None]
  - URINARY TRACT INFECTION [None]
